FAERS Safety Report 17821163 (Version 1)
Quarter: 2020Q2

REPORT INFORMATION
  Report Type: Spontaneous
  Country: US (occurrence: US)
  Receive Date: 20200525
  Receipt Date: 20200525
  Transmission Date: 20200714
  Serious: Yes (Hospitalization, Congenital Anomaly, Other)
  Sender: FDA-Public Use
  Company Number: US-STRIDES ARCOLAB LIMITED-2020SP005992

PATIENT
  Sex: Male
  Weight: 1.92 kg

DRUGS (3)
  1. BUPRENORPHINE. [Suspect]
     Active Substance: BUPRENORPHINE
     Indication: PRODUCT USED FOR UNKNOWN INDICATION
     Dosage: UNK
     Route: 064
  2. GABAPENTIN. [Suspect]
     Active Substance: GABAPENTIN
     Indication: PRODUCT USED FOR UNKNOWN INDICATION
     Dosage: UNK
     Route: 064
  3. HEROIN [Suspect]
     Active Substance: DIAMORPHINE
     Indication: PRODUCT USED FOR UNKNOWN INDICATION
     Dosage: UNK
     Route: 064

REACTIONS (21)
  - Facial wasting [Unknown]
  - Vomiting [Unknown]
  - Low birth weight baby [Unknown]
  - Eyelid ptosis [Unknown]
  - Muscle atrophy [Unknown]
  - Salivary hypersecretion [Unknown]
  - Foetal exposure during pregnancy [Unknown]
  - Poor sucking reflex [Unknown]
  - Premature baby [Unknown]
  - Drug withdrawal syndrome neonatal [Unknown]
  - Hypoxic-ischaemic encephalopathy [Unknown]
  - Joint hyperextension [Unknown]
  - Seizure [Unknown]
  - Facial paresis [Unknown]
  - Feeding intolerance [Unknown]
  - Areflexia [Unknown]
  - High-pitched crying [Unknown]
  - Hypotonia [Unknown]
  - Respiratory distress [Unknown]
  - Gastrooesophageal reflux disease [Unknown]
  - Small for dates baby [Unknown]
